FAERS Safety Report 12903509 (Version 1)
Quarter: 2016Q4

REPORT INFORMATION
  Report Type: Spontaneous
  Country: US (occurrence: US)
  Receive Date: 20161102
  Receipt Date: 20161102
  Transmission Date: 20170207
  Serious: Yes (Other)
  Sender: FDA-Public Use
  Company Number: US-BAYER-2016-205533

PATIENT
  Age: 29 Year
  Sex: Female

DRUGS (1)
  1. CIPRO [Suspect]
     Active Substance: CIPROFLOXACIN HYDROCHLORIDE
     Indication: CYSTITIS
     Dosage: UNK
     Dates: start: 2009

REACTIONS (9)
  - Pain in extremity [None]
  - Joint crepitation [None]
  - Pain in extremity [None]
  - Arthralgia [None]
  - Back pain [None]
  - Hypoaesthesia [None]
  - Paralysis [None]
  - Quality of life decreased [None]
  - Back pain [None]

NARRATIVE: CASE EVENT DATE: 2009
